FAERS Safety Report 22197375 (Version 1)
Quarter: 2023Q2

REPORT INFORMATION
  Report Type: Spontaneous
  Country: US (occurrence: None)
  Receive Date: 20230411
  Receipt Date: 20230411
  Transmission Date: 20230722
  Serious: Yes (Death)
  Sender: FDA-Public Use
  Company Number: None

PATIENT
  Age: 88 Year
  Sex: Female
  Weight: 27.9 kg

DRUGS (21)
  1. LENALIDOMIDE [Suspect]
     Active Substance: LENALIDOMIDE
     Indication: Plasma cell myeloma
     Dosage: OTHER FREQUENCY : 21D ON 7D OFF;?
     Route: 048
     Dates: start: 202005, end: 202304
  2. PREBIOTIC-PROBIOTIC [Concomitant]
  3. AMLODIPINE [Concomitant]
     Active Substance: AMLODIPINE BESYLATE
  4. ATORVASTATIN [Concomitant]
     Active Substance: ATORVASTATIN
  5. CALCIUM [Concomitant]
     Active Substance: CALCIUM
  6. CENTRUM ADULTS [Concomitant]
  7. DEXAMETHASONE [Concomitant]
     Active Substance: DEXAMETHASONE
  8. ELIQUIS [Concomitant]
     Active Substance: APIXABAN
  9. ENOXAPARIN [Concomitant]
     Active Substance: ENOXAPARIN
  10. FUROSEMIDE [Concomitant]
     Active Substance: FUROSEMIDE
  11. GABAPENTIN [Concomitant]
     Active Substance: GABAPENTIN
  12. JANUVIA [Concomitant]
     Active Substance: SITAGLIPTIN PHOSPHATE
  13. LEVOTHYROXINE [Concomitant]
     Active Substance: LEVOTHYROXINE
  14. METOPROLOL [Concomitant]
     Active Substance: METOPROLOL
  15. MIRAPEX [Concomitant]
     Active Substance: PRAMIPEXOLE DIHYDROCHLORIDE
  16. MIRTAZAPINE [Concomitant]
     Active Substance: MIRTAZAPINE
  17. OMEPRAZOLE [Concomitant]
     Active Substance: OMEPRAZOLE
  18. ONDANSETRON [Concomitant]
     Active Substance: ONDANSETRON
  19. POTASSIUM CHLORIDE [Concomitant]
     Active Substance: POTASSIUM CHLORIDE
  20. TYLENOL [Concomitant]
     Active Substance: ACETAMINOPHEN
  21. VANCOMYCIN [Concomitant]
     Active Substance: VANCOMYCIN

REACTIONS (1)
  - Death [None]
